FAERS Safety Report 16445404 (Version 1)
Quarter: 2019Q2

REPORT INFORMATION
  Report Type: Spontaneous
  Country: NL (occurrence: NL)
  Receive Date: 20190618
  Receipt Date: 20190618
  Transmission Date: 20190711
  Serious: Yes (Other)
  Sender: FDA-Public Use
  Company Number: NL-PFIZER INC-2019252610

PATIENT
  Age: 48 Year
  Sex: Female

DRUGS (4)
  1. ATROPINE SULFATE. [Suspect]
     Active Substance: ATROPINE SULFATE
     Dosage: 1000 UG, UNK (ALONG WITH 5000 UG OF NOREPINEPHRINE)
     Route: 040
  2. NOREPINEPHRINE. [Suspect]
     Active Substance: NOREPINEPHRINE
     Dosage: 5000 UG, UNK (5000 UG/5ML)(ALONG WITH 1000 UG OF ATROPINE)
     Route: 040
  3. PROPOFOL. [Concomitant]
     Active Substance: PROPOFOL
     Indication: ANAESTHESIA
  4. PROPOFOL. [Concomitant]
     Active Substance: PROPOFOL
     Indication: SEDATION
     Dosage: UNK (2 MG/KG/H)

REACTIONS (2)
  - Stress cardiomyopathy [Recovered/Resolved]
  - Pulmonary oedema [Recovered/Resolved]
